FAERS Safety Report 7360645-6 (Version None)
Quarter: 2011Q1

REPORT INFORMATION
  Report Type: 
  Country: None (occurrence: None)
  Receive Date: 20110318
  Receipt Date: 20110309
  Transmission Date: 20110831
  Serious: No
  Sender: FDA-Public Use
  Company Number: US-BAYER-2011-021722

PATIENT
  Sex: Female

DRUGS (1)
  1. MIRENA [Suspect]
     Dosage: 20 ?G, CONT
     Dates: end: 20101201

REACTIONS (2)
  - PREGNANCY WITH CONTRACEPTIVE DEVICE [None]
  - DEVICE EXPULSION [None]
